FAERS Safety Report 5801487-X (Version None)
Quarter: 2008Q3

REPORT INFORMATION
  Report Type: 
  Country: None (occurrence: None)
  Receive Date: 20080707
  Receipt Date: 20080627
  Transmission Date: 20090109
  Serious: Yes (Hospitalization)
  Sender: FDA-Public Use
  Company Number: GB-ROCHE-560474

PATIENT
  Sex: Female
  Weight: 93.9 kg

DRUGS (16)
  1. ORLISTAT [Suspect]
     Indication: OBESITY
     Route: 048
     Dates: start: 20080113
  2. ASPIRIN [Concomitant]
     Indication: THROMBOSIS PROPHYLAXIS
     Route: 048
  3. LANSOPRAZOLE [Concomitant]
     Indication: UNEVALUABLE EVENT
     Route: 048
  4. CITALOPRAM HYDROBROMIDE [Concomitant]
     Indication: DEPRESSION
     Dosage: PRESCRIBED TO INCREASE ENERGY LEVELS
     Route: 048
  5. DIGOXIN [Concomitant]
     Route: 048
  6. SPIROLACTONE [Concomitant]
     Route: 048
  7. TRAMADOL HCL [Concomitant]
     Indication: ARTHRITIS
     Route: 048
  8. DOXAZOSIN MESYLATE [Concomitant]
     Route: 048
  9. AMITRIPTYLINE HCL [Concomitant]
     Indication: PAIN
     Route: 048
  10. SIMVASTATIN [Concomitant]
     Dosage: REPORTED AS SIMVISTATIN
     Route: 048
  11. LOSARTAN [Concomitant]
     Dosage: REPORTED AS LOSARTEN
     Route: 048
  12. BISOPROLOL FUMARATE [Concomitant]
     Dosage: REPORTED AS ISOPRALOL
     Route: 048
  13. METFORMIN HCL [Concomitant]
     Route: 048
  14. FUROSEMIDE [Concomitant]
     Indication: FLUID RETENTION
     Route: 048
  15. ACETAMINOPHEN [Concomitant]
     Indication: PAIN
     Route: 048
  16. HUMALOG [Concomitant]
     Dosage: 50 IU MANE 60 IU NIGHT
     Route: 058

REACTIONS (1)
  - PULMONARY THROMBOSIS [None]
